FAERS Safety Report 22385396 (Version 1)
Quarter: 2023Q2

REPORT INFORMATION
  Report Type: Spontaneous
  Country: US (occurrence: None)
  Receive Date: 20230530
  Receipt Date: 20230530
  Transmission Date: 20230721
  Serious: No
  Sender: FDA-Public Use
  Company Number: None

PATIENT
  Age: 45 Year
  Sex: Female

DRUGS (4)
  1. CAPECITABINE [Suspect]
     Active Substance: CAPECITABINE
     Indication: Breast cancer female
     Dosage: 3T BID PO 7DON7DOFF?
     Route: 050
  2. VENLAFAXINE [Concomitant]
  3. LEVOTHYROXINE [Concomitant]
  4. POTASSIUM CHLORIDE [Concomitant]
     Active Substance: POTASSIUM CHLORIDE

REACTIONS (2)
  - Breast cancer female [None]
  - Malignant neoplasm progression [None]

NARRATIVE: CASE EVENT DATE: 20230509
